FAERS Safety Report 25627036 (Version 1)
Quarter: 2025Q3

REPORT INFORMATION
  Report Type: Spontaneous
  Country: US (occurrence: None)
  Receive Date: 20250730
  Receipt Date: 20250730
  Transmission Date: 20251021
  Serious: No
  Sender: FDA-CTU
  Company Number: None

PATIENT
  Age: 91 Year
  Sex: Female

DRUGS (1)
  1. COLLAGENASE SANTYL [Suspect]
     Active Substance: COLLAGENASE CLOSTRIDIUM HISTOLYTICUM
     Indication: Ulcer
     Dosage: OTHER STRENGTH : 250 U/GM;?FREQUENCY : TWICE A DAY;?OTHER ROUTE : TOPICAL APPLY TO AFFECTED AREA TWICE DAILY ;?
     Route: 050
     Dates: start: 20250603, end: 20250707

REACTIONS (1)
  - Respiratory failure [None]

NARRATIVE: CASE EVENT DATE: 20250707
